FAERS Safety Report 16633588 (Version 1)
Quarter: 2019Q3

REPORT INFORMATION
  Report Type: Spontaneous
  Country: US (occurrence: US)
  Receive Date: 20190725
  Receipt Date: 20190725
  Transmission Date: 20191004
  Serious: Yes (Hospitalization)
  Sender: FDA-Public Use
  Company Number: None

PATIENT
  Age: 35 Year
  Sex: Female
  Weight: 68.13 kg

DRUGS (5)
  1. ZIPRASIDONE. [Suspect]
     Active Substance: ZIPRASIDONE
     Indication: AGITATION
     Dosage: ?          OTHER FREQUENCY:ONE TIME;?
     Route: 030
     Dates: start: 20190723, end: 20190723
  2. LITHIUM 300 MG [Concomitant]
     Dates: start: 20190720, end: 20190723
  3. HALOPERIDOL 5 MG [Concomitant]
     Active Substance: HALOPERIDOL
     Dates: start: 20190720, end: 20190723
  4. BENZTROPINE 0.5 MG [Concomitant]
     Dates: start: 20190720, end: 20190723
  5. LORAZEPAM 2MG/1 ML INJECTION [Concomitant]
     Dates: start: 20190723, end: 20190723

REACTIONS (3)
  - Coordination abnormal [None]
  - Dysstasia [None]
  - Abnormal behaviour [None]

NARRATIVE: CASE EVENT DATE: 20190723
